FAERS Safety Report 5760325-4 (Version None)
Quarter: 2008Q2

REPORT INFORMATION
  Report Type: 
  Country: None (occurrence: None)
  Receive Date: 20080602
  Receipt Date: 20080515
  Transmission Date: 20081010
  Serious: Yes (Death, Hospitalization)
  Sender: FDA-Public Use
  Company Number: 2008US001386

PATIENT

DRUGS (1)
  1. AMEVIVE [Suspect]
     Indication: MYCOSIS FUNGOIDES
     Dosage: PARENTERAL
     Route: 051

REACTIONS (4)
  - INFECTION [None]
  - MALIGNANT NEOPLASM PROGRESSION [None]
  - PYREXIA [None]
  - T-CELL LYMPHOMA [None]
